FAERS Safety Report 4981698-6 (Version None)
Quarter: 2006Q2

REPORT INFORMATION
  Report Type: 
  Country: None (occurrence: None)
  Receive Date: 20060420
  Receipt Date: 20060420
  Transmission Date: 20061013
  Serious: Yes (Life-Threatening)
  Sender: FDA-Public Use
  Company Number: None

PATIENT
  Sex: Male
  Weight: 101.6057 kg

DRUGS (1)
  1. BYETTA [Suspect]
     Dosage: 10 MCG BID SUBCUTANEOUS
     Route: 058
     Dates: start: 20060117

REACTIONS (1)
  - NEUTROPENIA [None]
